FAERS Safety Report 8381817-8 (Version None)
Quarter: 2012Q2

REPORT INFORMATION
  Report Type: 
  Country: None (occurrence: None)
  Receive Date: 20120522
  Receipt Date: 20120522
  Transmission Date: 20120825
  Serious: No
  Sender: FDA-Public Use
  Company Number: None

PATIENT
  Age: 46 Year
  Sex: Female
  Weight: 89.3586 kg

DRUGS (1)
  1. AMBIEN [Suspect]

REACTIONS (10)
  - TINNITUS [None]
  - SOMNOLENCE [None]
  - DIZZINESS [None]
  - NASAL CONGESTION [None]
  - NERVOUSNESS [None]
  - TACHYPHRENIA [None]
  - FEAR [None]
  - TENSION HEADACHE [None]
  - FEELING ABNORMAL [None]
  - ASTHENIA [None]
